FAERS Safety Report 9437358 (Version 1)
Quarter: 2013Q3

REPORT INFORMATION
  Report Type: Spontaneous
  Country: ES (occurrence: ES)
  Receive Date: 20130802
  Receipt Date: 20130802
  Transmission Date: 20140515
  Serious: Yes (Hospitalization)
  Sender: FDA-Public Use
  Company Number: ES-SANOFI-AVENTIS-2013SA075180

PATIENT
  Age: 69 Year
  Sex: Female

DRUGS (8)
  1. CLEXANE [Suspect]
     Indication: THROMBOSIS PROPHYLAXIS
     Dosage: 40MG
     Route: 058
     Dates: start: 20121031, end: 20121108
  2. METHYLPREDNISOLONE [Suspect]
     Indication: RHEUMATOID ARTHRITIS
     Dosage: 60MG
     Route: 048
     Dates: start: 20121107, end: 20121107
  3. CARVEDILOL [Concomitant]
     Indication: HYPERTENSION
     Dosage: 1-0-1
     Route: 048
  4. EPLERENONE [Concomitant]
     Indication: CARDIOMYOPATHY
     Dosage: 1-0-0
     Route: 048
     Dates: start: 2010
  5. PREDNISONA [Concomitant]
     Indication: RHEUMATOID ARTHRITIS
     Dosage: 2.5MG
     Route: 048
     Dates: start: 20121031
  6. OMEPRAZOLE [Concomitant]
     Indication: PROPHYLAXIS AGAINST GASTROINTESTINAL ULCER
     Dosage: 1CP
     Route: 048
     Dates: start: 2010
  7. PARACETAMOL [Concomitant]
     Indication: RHEUMATOID ARTHRITIS
     Dosage: 1-1-1
     Route: 048
  8. SULFASALAZINE [Concomitant]
     Indication: RHEUMATOID ARTHRITIS
     Dosage: 1-0-1
     Route: 048
     Dates: start: 2010

REACTIONS (1)
  - Hepatitis [Recovered/Resolved]
